FAERS Safety Report 8907752 (Version 4)
Quarter: 2013Q1

REPORT INFORMATION
  Report Type: Spontaneous
  Country: JP (occurrence: JP)
  Receive Date: 20121113
  Receipt Date: 20130226
  Transmission Date: 20140127
  Serious: Yes (Hospitalization)
  Sender: FDA-Public Use
  Company Number: CHNY2012JP000617

PATIENT
  Age: 50 Year
  Sex: Female

DRUGS (1)
  1. NICOTINELL TTS [Suspect]
     Indication: SMOKING CESSATION THERAPY
     Dosage: 52.5 MG, QD
     Route: 062
     Dates: start: 20120615, end: 20120627

REACTIONS (3)
  - Cerebral vasoconstriction [Recovered/Resolved]
  - Cluster headache [Recovered/Resolved]
  - Movement disorder [Recovered/Resolved]
